FAERS Safety Report 9114436 (Version 3)
Quarter: 2013Q2

REPORT INFORMATION
  Report Type: Spontaneous
  Country: US (occurrence: US)
  Receive Date: 20130209
  Receipt Date: 20130426
  Transmission Date: 20140414
  Serious: Yes (Hospitalization)
  Sender: FDA-Public Use
  Company Number: US-B.I. PHARMACEUTICALS,INC./RIDGEFIELD-2013-BI-03365BP

PATIENT
  Age: 68 Year
  Sex: Female
  Weight: 70.31 kg

DRUGS (20)
  1. PRADAXA [Suspect]
     Indication: ANTICOAGULANT THERAPY
     Dosage: 300 MG
     Route: 048
     Dates: start: 20110202, end: 20110321
  2. OXYBUTYNIN CHLORIDE [Concomitant]
     Dosage: 10 MG
     Route: 048
  3. LIPITOR [Concomitant]
     Dosage: 80 MG
     Route: 048
  4. EFFEXOR [Concomitant]
     Dosage: 150 MG
     Route: 048
  5. SPIRIVA [Concomitant]
     Dosage: 18 MCG
     Route: 055
  6. SYMBICORT [Concomitant]
     Route: 055
  7. METFORMIN [Concomitant]
     Dosage: 1000 MG
     Route: 048
  8. TOPROL [Concomitant]
     Dosage: 100 MG
     Route: 048
  9. NEXIUM [Concomitant]
     Dosage: 40 MG
     Route: 048
  10. RAMIPRIL [Concomitant]
     Dosage: 5 MG
     Route: 048
  11. LEVOTHYROXINE [Concomitant]
     Dosage: 75 MCG
     Route: 048
  12. REQUIP [Concomitant]
     Dosage: 1 MG
     Route: 048
  13. TRAZODONE [Concomitant]
     Dosage: 50 MG
     Route: 048
  14. ZETIA [Concomitant]
     Dosage: 10 MG
     Route: 048
  15. PREDNISONE [Concomitant]
     Dosage: 40 MG
     Route: 048
  16. ALBUTEROL [Concomitant]
     Route: 055
  17. FOLIC ACID [Concomitant]
     Dosage: 1 MG
  18. SEROQUEL [Concomitant]
     Dosage: 150 MG
  19. AMBIEN [Concomitant]
     Indication: SLEEP DISORDER
     Dosage: 10 MG
  20. ALPRAZOLAM [Concomitant]
     Indication: ANXIETY
     Dosage: 0.75 MG

REACTIONS (2)
  - Gastrointestinal haemorrhage [Unknown]
  - Mouth haemorrhage [Unknown]
